FAERS Safety Report 7523926-9 (Version None)
Quarter: 2011Q2

REPORT INFORMATION
  Report Type: 
  Country: None (occurrence: None)
  Receive Date: 20110603
  Receipt Date: 20110525
  Transmission Date: 20111010
  Serious: Yes (Hospitalization, Other)
  Sender: FDA-Public Use
  Company Number: DE-RB-028044-11

PATIENT
  Sex: Female
  Weight: 2.3 kg

DRUGS (1)
  1. SUBUTEX [Suspect]
     Indication: DRUG WITHDRAWAL SYNDROME
     Dosage: DOSING INFORMATION IS UNKNOWN
     Route: 064

REACTIONS (3)
  - FEEDING DISORDER NEONATAL [None]
  - SMALL FOR DATES BABY [None]
  - DRUG WITHDRAWAL SYNDROME NEONATAL [None]
